FAERS Safety Report 18733027 (Version 1)
Quarter: 2021Q1

REPORT INFORMATION
  Report Type: Spontaneous
  Country: US (occurrence: US)
  Receive Date: 20210113
  Receipt Date: 20210113
  Transmission Date: 20210419
  Serious: Yes (Other)
  Sender: FDA-Public Use
  Company Number: US-HIKMA PHARMACEUTICALS USA INC.-US-H14001-21-53289

PATIENT
  Age: 59 Year
  Sex: Male

DRUGS (1)
  1. CAPECITABINE. [Suspect]
     Active Substance: CAPECITABINE
     Indication: COLON CANCER STAGE III
     Dosage: UNKNOWN
     Route: 065

REACTIONS (3)
  - Nephropathy [Recovered/Resolved]
  - Cholestasis [Unknown]
  - Drug-induced liver injury [Unknown]
